FAERS Safety Report 5794186-4 (Version None)
Quarter: 2008Q2

REPORT INFORMATION
  Report Type: 
  Country: None (occurrence: None)
  Receive Date: 20080625
  Receipt Date: 20080612
  Transmission Date: 20081010
  Serious: Yes (Other)
  Sender: FDA-Public Use
  Company Number: 2008015450

PATIENT
  Sex: Male

DRUGS (1)
  1. VISINE-A [Suspect]
     Dosage: 2 DROPS WHEN NEEDED; OPHTHALMIC
     Route: 047

REACTIONS (1)
  - EYE BURNS [None]
